FAERS Safety Report 7988706-9 (Version None)
Quarter: 2011Q4

REPORT INFORMATION
  Report Type: 
  Country: None (occurrence: None)
  Receive Date: 20111218
  Receipt Date: 20111209
  Transmission Date: 20120403
  Serious: Yes (Death, Life-Threatening, Hospitalization, Other)
  Sender: FDA-Public Use
  Company Number: US-ELI_LILLY_AND_COMPANY-US201106000526

PATIENT
  Sex: Female
  Weight: 86.168 kg

DRUGS (15)
  1. KEFLEX [Concomitant]
     Dosage: 250 MG, QID
     Dates: end: 20110501
  2. PRILOSEC [Concomitant]
     Dosage: 30 MG, QD
     Dates: end: 20110501
  3. CYMBALTA [Suspect]
     Indication: NEUROPATHY PERIPHERAL
     Dosage: 60 MG, QD
     Route: 048
     Dates: start: 20110101, end: 20110401
  4. EXTRA STRENGTH TYLENOL [Concomitant]
     Dosage: 500 MG, OTHER
     Dates: end: 20110501
  5. ADVIL LIQUI-GELS [Concomitant]
     Dosage: UNK, OTHER
     Dates: end: 20110501
  6. CYMBALTA [Suspect]
     Dosage: 60 MG, QD
     Route: 048
     Dates: start: 20110501, end: 20110521
  7. AZITHROMYCIN [Concomitant]
     Dosage: UNK
     Dates: start: 20110514, end: 20110517
  8. CYMBALTA [Suspect]
     Dosage: 120 MG
  9. LASIX [Concomitant]
     Dosage: 40 MG, BID
     Dates: end: 20110501
  10. HEPARIN [Concomitant]
     Dosage: UNK
     Dates: start: 20110514, end: 20110517
  11. PANTOPRAZOLE [Concomitant]
     Dosage: UNK
     Dates: start: 20110514, end: 20110517
  12. HYDROCORTISONE [Concomitant]
     Dosage: 50 MG, EVERY 8 HRS
     Route: 042
  13. ZOSYN [Concomitant]
     Dosage: UNK
     Dates: start: 20110516
  14. VANCOMYCIN HYCHLORIDE [Concomitant]
     Dosage: 1 DF, UNK
     Dates: start: 20110513, end: 20110513
  15. CEFTRIAXONE [Concomitant]
     Dosage: UNK
     Dates: start: 20110514, end: 20110516

REACTIONS (8)
  - HEPATIC FUNCTION ABNORMAL [None]
  - OFF LABEL USE [None]
  - RENAL FAILURE ACUTE [None]
  - PNEUMONIA [None]
  - HEPATIC FAILURE [None]
  - MULTI-ORGAN FAILURE [None]
  - HYPOTENSION [None]
  - THROMBOCYTOPENIA [None]
